FAERS Safety Report 4405595-X (Version None)
Quarter: 2004Q3

REPORT INFORMATION
  Report Type: 
  Country: None (occurrence: None)
  Receive Date: 20040723
  Receipt Date: 20031013
  Transmission Date: 20050211
  Serious: No
  Sender: FDA-Public Use
  Company Number: US-GLAXOSMITHKLINE-A0429972A

PATIENT
  Age: 73 Year
  Sex: Male

DRUGS (5)
  1. AVANDIA [Suspect]
     Dosage: 8MG PER DAY
     Route: 048
     Dates: start: 20031002
  2. TERAZOSIN HCL [Concomitant]
  3. FLU VACCINE [Concomitant]
  4. FELODIPINE [Concomitant]
  5. RABEPRAZOLE SODIUM [Concomitant]

REACTIONS (1)
  - RASH [None]
